FAERS Safety Report 13038619 (Version 1)
Quarter: 2016Q4

REPORT INFORMATION
  Report Type: Spontaneous
  Country: US (occurrence: US)
  Receive Date: 20161219
  Receipt Date: 20161219
  Transmission Date: 20170207
  Serious: Yes (Hospitalization, Other)
  Sender: FDA-Public Use
  Company Number: US-BEH-2016075943

PATIENT
  Age: 76 Year
  Sex: Female
  Weight: 95.24 kg

DRUGS (23)
  1. HIZENTRA [Suspect]
     Active Substance: HUMAN IMMUNOGLOBULIN G
     Indication: IMMUNODEFICIENCY COMMON VARIABLE
     Dosage: 15 G, QW
     Route: 058
     Dates: start: 20110210
  2. PRILOSEC [Concomitant]
     Active Substance: OMEPRAZOLE MAGNESIUM
  3. DIPHENHYDRAMINE. [Concomitant]
     Active Substance: DIPHENHYDRAMINE
  4. MULTIVITAMIN                       /00097801/ [Concomitant]
     Active Substance: VITAMINS
  5. ZOCOR [Concomitant]
     Active Substance: SIMVASTATIN
  6. LIDOCAINE/PRILOCAINE [Concomitant]
     Active Substance: LIDOCAINE\PRILOCAINE
  7. EPIPEN [Concomitant]
     Active Substance: EPINEPHRINE
  8. HIZENTRA [Suspect]
     Active Substance: HUMAN IMMUNOGLOBULIN G
     Dosage: UNK
     Route: 058
  9. GUAIFENESIN. [Concomitant]
     Active Substance: GUAIFENESIN
  10. VITAMIN D2 [Concomitant]
     Active Substance: ERGOCALCIFEROL
  11. PREMARIN [Concomitant]
     Active Substance: ESTROGENS, CONJUGATED
  12. COZAAR [Concomitant]
     Active Substance: LOSARTAN POTASSIUM
  13. ASPIRIN. [Concomitant]
     Active Substance: ASPIRIN
  14. POTASSIUM [Concomitant]
     Active Substance: POTASSIUM
  15. OXYGEN. [Concomitant]
     Active Substance: OXYGEN
  16. ALPRAZOLAM. [Concomitant]
     Active Substance: ALPRAZOLAM
  17. SALINE                             /00075401/ [Concomitant]
     Active Substance: SODIUM CHLORIDE
  18. ACETAMINOPHEN. [Concomitant]
     Active Substance: ACETAMINOPHEN
  19. LASIX [Concomitant]
     Active Substance: FUROSEMIDE
  20. MIRAPEX [Concomitant]
     Active Substance: PRAMIPEXOLE DIHYDROCHLORIDE
  21. TUDORZA PRESSAIR [Concomitant]
     Active Substance: ACLIDINIUM BROMIDE
  22. SINGULAIR [Concomitant]
     Active Substance: MONTELUKAST SODIUM
  23. XOPENEX [Concomitant]
     Active Substance: LEVALBUTEROL HYDROCHLORIDE

REACTIONS (2)
  - Chronic obstructive pulmonary disease [Unknown]
  - Thrombosis [Unknown]

NARRATIVE: CASE EVENT DATE: 20161123
